FAERS Safety Report 6133044-2 (Version None)
Quarter: 2009Q1

REPORT INFORMATION
  Report Type: 
  Country: None (occurrence: None)
  Receive Date: 20090326
  Receipt Date: 20090317
  Transmission Date: 20090719
  Serious: Yes (Hospitalization, Other)
  Sender: FDA-Public Use
  Company Number: US-PFIZER INC-2009185125

PATIENT
  Age: 76 Year
  Sex: Male

DRUGS (3)
  1. LIPITOR [Suspect]
     Dates: end: 20080701
  2. METFORMIN HCL [Suspect]
  3. ATENOLOL [Concomitant]
     Dosage: UNK

REACTIONS (8)
  - CARDIAC FAILURE [None]
  - CEREBROVASCULAR ACCIDENT [None]
  - FALL [None]
  - HEAD INJURY [None]
  - HYPOXIA [None]
  - MUSCLE ATROPHY [None]
  - MUSCULAR WEAKNESS [None]
  - MYOCARDIAL INFARCTION [None]
